FAERS Safety Report 7386936-0 (Version None)
Quarter: 2011Q1

REPORT INFORMATION
  Report Type: 
  Country: None (occurrence: None)
  Receive Date: 20110331
  Receipt Date: 20110318
  Transmission Date: 20110831
  Serious: Yes (Other)
  Sender: FDA-Public Use
  Company Number: US-CELGENEUS-163-21880-10082389

PATIENT
  Sex: Female
  Weight: 50.848 kg

DRUGS (15)
  1. REVLIMID [Suspect]
     Dosage: 10MG -15MG
     Route: 048
     Dates: start: 20080601
  2. ZEMPLAR [Concomitant]
     Dosage: 1 MICROGRAM
     Route: 048
  3. DEXILANT [Concomitant]
     Route: 065
  4. NEXIUM [Concomitant]
     Dosage: 20 MILLIGRAM
     Route: 048
  5. FOLIC ACID [Concomitant]
     Dosage: 1 MILLIGRAM
     Route: 048
  6. FLAXSEED OIL [Concomitant]
     Route: 048
  7. VITAMIN D [Concomitant]
     Route: 065
  8. REVLIMID [Suspect]
     Dosage: 5 MILLIGRAM
     Route: 048
     Dates: start: 20090601
  9. ASPIRIN [Concomitant]
     Dosage: 81 MILLIGRAM
     Route: 048
  10. COQ-10 [Concomitant]
     Dosage: 100 MILLIGRAM
     Route: 048
  11. REVLIMID [Suspect]
     Dosage: 10MG -15MG
     Route: 048
     Dates: start: 20081201
  12. BENAZEPRIL HYDROCHLORIDE [Concomitant]
     Dosage: 5 MILLIGRAM
     Route: 048
  13. MULTI-VITAMINS [Concomitant]
     Route: 048
  14. REVLIMID [Suspect]
     Indication: MULTIPLE MYELOMA
     Dosage: 25 MILLIGRAM
     Route: 048
     Dates: start: 20070127
  15. REVLIMID [Suspect]
     Dosage: 10 MILLIGRAM
     Route: 048
     Dates: start: 20090401

REACTIONS (2)
  - HAEMORRHAGE [None]
  - CONTUSION [None]
